FAERS Safety Report 9344960 (Version 2)
Quarter: 2014Q2

REPORT INFORMATION
  Report Type: Spontaneous
  Country: US (occurrence: US)
  Receive Date: 20130612
  Receipt Date: 20140507
  Transmission Date: 20141212
  Serious: No
  Sender: FDA-Public Use
  Company Number: US-ASTRAZENECA-2013SE40079

PATIENT
  Age: 53 Year
  Sex: Female
  Weight: 108.9 kg

DRUGS (12)
  1. NEXIUM [Suspect]
     Indication: DYSPEPSIA
     Route: 048
  2. NEXIUM [Suspect]
     Indication: GASTROOESOPHAGEAL REFLUX DISEASE
     Route: 048
  3. NEXIUM [Suspect]
     Indication: DYSPEPSIA
     Route: 048
     Dates: start: 20120613, end: 201304
  4. NEXIUM [Suspect]
     Indication: GASTROOESOPHAGEAL REFLUX DISEASE
     Route: 048
     Dates: start: 20120613, end: 201304
  5. NEXIUM [Suspect]
     Indication: DYSPEPSIA
     Route: 048
     Dates: start: 20140304
  6. NEXIUM [Suspect]
     Indication: GASTROOESOPHAGEAL REFLUX DISEASE
     Route: 048
     Dates: start: 20140304
  7. AMLODIPINE BESYLATE [Concomitant]
     Indication: HYPERTENSION
  8. HYZAAR [Concomitant]
     Indication: HYPERTENSION
     Route: 048
  9. TUMS (OTC) [Concomitant]
     Indication: DYSPEPSIA
     Dosage: TAKE TWO AS NEEDED
     Dates: start: 2011, end: 2012
  10. ROLAIDS [Concomitant]
     Indication: DYSPEPSIA
     Dosage: TAKE TWO AS NEEDED
     Dates: start: 2011, end: 2012
  11. MILK OF MAGNESIA [Concomitant]
     Dates: start: 2011, end: 2012
  12. PEPTO BISMOL [Concomitant]
     Dosage: ONE TABLE SPOON

REACTIONS (7)
  - Osteoporosis [Unknown]
  - Multiple fractures [Unknown]
  - Lumbar vertebral fracture [Unknown]
  - Hypothyroidism [Unknown]
  - Liver disorder [Unknown]
  - Vitamin D deficiency [Unknown]
  - Intervertebral disc protrusion [Unknown]
